FAERS Safety Report 5856288-3 (Version None)
Quarter: 2008Q3

REPORT INFORMATION
  Report Type: 
  Country: None (occurrence: None)
  Receive Date: 20080825
  Receipt Date: 20080821
  Transmission Date: 20090109
  Serious: Yes (Hospitalization)
  Sender: FDA-Public Use
  Company Number: B0533981A

PATIENT
  Age: 25 Year
  Sex: Female

DRUGS (4)
  1. LAMOTRIGINE [Suspect]
     Dosage: 250MG PER DAY
  2. PHENYTOIN [Suspect]
     Dosage: 300MG PER DAY
     Route: 048
     Dates: start: 20080803, end: 20080807
  3. TEGRETOL [Suspect]
     Dosage: 1200MG PER DAY
  4. ZONISAMIDE [Suspect]
     Dosage: 300MG PER DAY

REACTIONS (2)
  - CONVULSION [None]
  - DRUG INTERACTION [None]
